FAERS Safety Report 11105419 (Version 1)
Quarter: 2015Q2

REPORT INFORMATION
  Report Type: Not Available
  Country: IN (occurrence: IN)
  Receive Date: 20150512
  Receipt Date: 20150512
  Transmission Date: 20150821
  Serious: No
  Sender: FDA-Public Use
  Company Number: IN-LUPIN PHARMACEUTICALS INC.-E2B_00003381

PATIENT
  Age: 28 Year
  Sex: Male

DRUGS (4)
  1. LYCORED [Suspect]
     Active Substance: VITAMINS
     Indication: PYREXIA
     Route: 048
     Dates: start: 20150319
  2. PANTOP DSR [Suspect]
     Active Substance: DOMPERIDONE\PANTOPRAZOLE SODIUM
     Indication: PYREXIA
     Route: 048
     Dates: start: 20150319
  3. CEFAXONE [Suspect]
     Active Substance: CEFTRIAXONE
     Indication: PYREXIA
     Route: 042
     Dates: start: 20150319, end: 20150319
  4. ALKASOL P [Suspect]
     Active Substance: ACETAMINOPHEN\DISODIUM HYDROGEN CITRATE\SORBITOL
     Indication: PYREXIA
     Route: 048
     Dates: start: 20150319

REACTIONS (2)
  - Dyspepsia [Recovered/Resolved]
  - Asthenia [Recovered/Resolved]

NARRATIVE: CASE EVENT DATE: 20150319
